FAERS Safety Report 12394646 (Version 2)
Quarter: 2016Q3

REPORT INFORMATION
  Report Type: Report from Study
  Country: AR (occurrence: AR)
  Receive Date: 20160523
  Receipt Date: 20160704
  Transmission Date: 20161109
  Serious: Yes (Hospitalization, Other)
  Sender: FDA-Public Use
  Company Number: AR-ABBVIE-16K-007-1633893-00

PATIENT
  Age: 35 Year
  Sex: Female

DRUGS (2)
  1. HUMIRA [Suspect]
     Active Substance: ADALIMUMAB
     Route: 058
     Dates: start: 2014
  2. HUMIRA [Suspect]
     Active Substance: ADALIMUMAB
     Indication: RHEUMATOID ARTHRITIS
     Route: 058
     Dates: start: 2011, end: 2014

REACTIONS (8)
  - Weight decreased [Unknown]
  - Renal impairment [Unknown]
  - Glomerulonephritis rapidly progressive [Unknown]
  - Granulomatosis with polyangiitis [Unknown]
  - Haematuria [Unknown]
  - Haemoptysis [Unknown]
  - Tuberculosis [Unknown]
  - Vasculitis [Unknown]

NARRATIVE: CASE EVENT DATE: 2014
